FAERS Safety Report 19874109 (Version 1)
Quarter: 2021Q3

REPORT INFORMATION
  Report Type: Spontaneous
  Country: US (occurrence: US)
  Receive Date: 20210923
  Receipt Date: 20210923
  Transmission Date: 20211014
  Serious: No
  Sender: FDA-Public Use
  Company Number: US-009507513-2109USA003235

PATIENT
  Age: 60 Year
  Sex: Female

DRUGS (3)
  1. MULTI?VIT [Concomitant]
     Active Substance: VITAMINS
     Dosage: UNK
  2. STROMECTOL [Suspect]
     Active Substance: IVERMECTIN
     Indication: CORONAVIRUS INFECTION
     Dosage: UNK
     Route: 048
     Dates: start: 20210906
  3. ZINC. [Concomitant]
     Active Substance: ZINC
     Dosage: UNK

REACTIONS (5)
  - Product dose omission issue [Unknown]
  - Product availability issue [Unknown]
  - Product prescribing issue [Unknown]
  - No adverse event [Unknown]
  - Product use in unapproved indication [Unknown]

NARRATIVE: CASE EVENT DATE: 202109
